FAERS Safety Report 5344937-8 (Version None)
Quarter: 2007Q2

REPORT INFORMATION
  Report Type: 
  Country: None (occurrence: None)
  Receive Date: 20070416
  Receipt Date: 20070112
  Transmission Date: 20071010
  Serious: Yes (Other)
  Sender: FDA-Public Use
  Company Number: 2006SP003216

PATIENT
  Age: 59 Year
  Sex: Male

DRUGS (3)
  1. LUNESTA [Suspect]
     Dosage: SEE IMAGE
     Route: 048
     Dates: start: 20060904, end: 20060901
  2. LUNESTA [Suspect]
     Dosage: SEE IMAGE
     Route: 048
     Dates: start: 20060904, end: 20060904
  3. TRAMADOL HCL [Concomitant]

REACTIONS (9)
  - ABNORMAL BEHAVIOUR [None]
  - AGGRESSION [None]
  - AGITATION [None]
  - AMNESIA [None]
  - DISORIENTATION [None]
  - GAIT DISTURBANCE [None]
  - HYPERSOMNIA [None]
  - INCOHERENT [None]
  - SKIN LACERATION [None]
